FAERS Safety Report 7772779-2 (Version None)
Quarter: 2011Q3

REPORT INFORMATION
  Report Type: 
  Country: None (occurrence: None)
  Receive Date: 20110922
  Receipt Date: 20110228
  Transmission Date: 20111222
  Serious: No
  Sender: FDA-Public Use
  Company Number: US-ASTRAZENECA-2011SE05132

PATIENT
  Age: 34 Year
  Sex: Female
  Weight: 144.7 kg

DRUGS (7)
  1. VERAPAMIL [Concomitant]
     Indication: HYPERTENSION
  2. PRILOSEC [Concomitant]
     Indication: ABDOMINAL DISCOMFORT
  3. LITHIUM [Concomitant]
     Indication: BIPOLAR DISORDER
  4. HYDROCHLOROT [Concomitant]
     Indication: DIURETIC THERAPY
  5. SEROQUEL [Suspect]
     Indication: BIPOLAR DISORDER
     Route: 048
     Dates: start: 20070101
  6. METFORMIN [Concomitant]
     Indication: DIABETES MELLITUS
  7. LORATADINE [Concomitant]
     Indication: HYPERSENSITIVITY

REACTIONS (10)
  - DIARRHOEA [None]
  - WEIGHT INCREASED [None]
  - DRUG DOSE OMISSION [None]
  - OROPHARYNGEAL PAIN [None]
  - PYREXIA [None]
  - PRODUCTIVE COUGH [None]
  - FEELING ABNORMAL [None]
  - VOMITING [None]
  - SINUS OPERATION [None]
  - NAUSEA [None]
